FAERS Safety Report 15601092 (Version 1)
Quarter: 2018Q4

REPORT INFORMATION
  Report Type: Spontaneous
  Country: US (occurrence: US)
  Receive Date: 20181108
  Receipt Date: 20181108
  Transmission Date: 20190205
  Serious: Yes (Hospitalization)
  Sender: FDA-Public Use
  Company Number: None

PATIENT
  Age: 30 Year
  Sex: Male

DRUGS (1)
  1. INVEGA [Suspect]
     Active Substance: PALIPERIDONE

REACTIONS (4)
  - Dysphagia [None]
  - Speech disorder [None]
  - Dyskinesia [None]
  - Pain in jaw [None]

NARRATIVE: CASE EVENT DATE: 20100813
